FAERS Safety Report 18134540 (Version 1)
Quarter: 2020Q3

REPORT INFORMATION
  Report Type: Spontaneous
  Country: US (occurrence: US)
  Receive Date: 20200811
  Receipt Date: 20200811
  Transmission Date: 20201103
  Serious: No
  Sender: FDA-Public Use
  Company Number: US-PFIZER INC-2020305139

PATIENT
  Age: 77 Year
  Sex: Female
  Weight: 66.68 kg

DRUGS (2)
  1. METOPROLOL TARTRATE. [Concomitant]
     Active Substance: METOPROLOL TARTRATE
     Indication: CARDIAC DISORDER
     Dosage: UNK, 2X/DAY (HALF OF A 25MG, TABLET, BY MOUTH, TWICE DAILY)
     Route: 048
  2. PHENYTOIN. [Suspect]
     Active Substance: PHENYTOIN
     Indication: EPILEPSY
     Dosage: 100 MG TWICE A DAY
     Route: 048

REACTIONS (1)
  - Drug ineffective [Unknown]
